FAERS Safety Report 9046978 (Version 1)
Quarter: 2013Q1

REPORT INFORMATION
  Report Type: Spontaneous
  Country: US (occurrence: None)
  Receive Date: 20130129
  Receipt Date: 20130129
  Transmission Date: 20140127
  Serious: No
  Sender: FDA-Public Use
  Company Number: None

PATIENT
  Sex: 0

DRUGS (1)
  1. TAMIFLU 75MG GENENTECH [Suspect]
     Indication: INFLUENZA
     Dosage: 2 TIMES DAILY
     Route: 048
     Dates: start: 20130108, end: 20130113

REACTIONS (1)
  - Skin papilloma [None]
